FAERS Safety Report 9381398 (Version 4)
Quarter: 2013Q4

REPORT INFORMATION
  Report Type: Spontaneous
  Country: GB (occurrence: GB)
  Receive Date: 20130703
  Receipt Date: 20131029
  Transmission Date: 20140711
  Serious: Yes (Hospitalization)
  Sender: FDA-Public Use
  Company Number: PHFR2013GB003700

PATIENT
  Age: 31 Year
  Sex: Female

DRUGS (7)
  1. CLOZARIL [Suspect]
     Indication: SCHIZOPHRENIA
     Dosage: 500 MG, QD
     Route: 048
     Dates: start: 20120416, end: 20130621
  2. ARIPIPRAZOLE [Concomitant]
     Indication: PSYCHOTIC DISORDER
     Dosage: 10 MG, QD
     Route: 048
  3. VENLAFAXINE [Concomitant]
     Indication: PSYCHOTIC DISORDER
     Dosage: 150 MG, DAILY
     Route: 048
  4. VALPROATE SEMISODIUM [Concomitant]
     Indication: PSYCHOTIC DISORDER
     Dosage: 500 MG, DAILY
     Route: 048
  5. MIRTAZAPINE [Concomitant]
     Indication: PSYCHOTIC DISORDER
     Dosage: 30 MG, DAILY
     Route: 048
  6. HYOSCINE HYDROBROMIDE [Concomitant]
     Indication: PSYCHOTIC DISORDER
     Dosage: 600 MG, DAILY
     Route: 048
  7. DIAZEPAM [Concomitant]
     Indication: PSYCHOTIC DISORDER
     Dosage: 15 MG, DAILY
     Route: 048

REACTIONS (11)
  - Foreign body [Recovered/Resolved with Sequelae]
  - Traumatic lung injury [Recovered/Resolved with Sequelae]
  - Lung abscess [Recovered/Resolved with Sequelae]
  - Tracheal disorder [Recovered/Resolved]
  - Bronchitis [Recovered/Resolved]
  - Intentional self-injury [Recovered/Resolved with Sequelae]
  - Infection [Recovered/Resolved]
  - Pyrexia [Recovered/Resolved]
  - Somnolence [Recovered/Resolved]
  - Tachycardia [Recovered/Resolved]
  - Antipsychotic drug level increased [Recovered/Resolved]
